FAERS Safety Report 22646228 (Version 1)
Quarter: 2023Q2

REPORT INFORMATION
  Report Type: Report from Study
  Country: CN (occurrence: None)
  Receive Date: 20230627
  Receipt Date: 20230627
  Transmission Date: 20230722
  Serious: Yes (Hospitalization)
  Sender: FDA-Public Use
  Company Number: CN-ROCHE-3370511

PATIENT
  Age: 30 Year
  Sex: Female
  Weight: 45 kg

DRUGS (7)
  1. OBINUTUZUMAB [Suspect]
     Active Substance: OBINUTUZUMAB
     Indication: Glomerulonephritis membranous
     Dosage: DOSE CONCENTRATION 4 MG/ML?TOTAL VOLUME PRIOR SAE 250 ML?ON 29/MAY/2023, SHE RECEIVED THE MOST RECEN
     Route: 042
     Dates: start: 20221212
  2. VALSARTAN [Concomitant]
     Active Substance: VALSARTAN
     Indication: Glomerulonephritis membranous
     Route: 048
     Dates: start: 20220815
  3. VITAMIN C [Concomitant]
     Active Substance: ASCORBIC ACID
     Indication: Upper respiratory tract infection
     Dates: start: 20230525, end: 20230525
  4. METHYLPREDNISOLONE [Concomitant]
     Active Substance: METHYLPREDNISOLONE
     Route: 042
     Dates: start: 20230612, end: 20230612
  5. METHYLPREDNISOLONE [Concomitant]
     Active Substance: METHYLPREDNISOLONE
     Route: 042
     Dates: start: 20230529, end: 20230529
  6. ACETAMINOPHEN [Concomitant]
     Active Substance: ACETAMINOPHEN
     Route: 048
     Dates: start: 20230529, end: 20230612
  7. DIPHENHYDRAMINE [Concomitant]
     Active Substance: DIPHENHYDRAMINE
     Route: 048
     Dates: start: 20230529, end: 20230612

REACTIONS (1)
  - Neutropenia [Recovered/Resolved]

NARRATIVE: CASE EVENT DATE: 20230612
